FAERS Safety Report 14812821 (Version 2)
Quarter: 2018Q4

REPORT INFORMATION
  Report Type: Spontaneous
  Country: FR (occurrence: FR)
  Receive Date: 20180426
  Receipt Date: 20181227
  Transmission Date: 20190204
  Serious: Yes (Other)
  Sender: FDA-Public Use
  Company Number: FR-MERCK KGAA-2046528

PATIENT
  Age: 41 Year
  Sex: Female

DRUGS (1)
  1. EUTHYROX [Suspect]
     Active Substance: LEVOTHYROXINE SODIUM
     Indication: PRODUCT USED FOR UNKNOWN INDICATION
     Dates: start: 20170422

REACTIONS (19)
  - Dyspnoea exertional [None]
  - Musculoskeletal pain [None]
  - Fatigue [None]
  - Asthenia [None]
  - Amnesia [None]
  - Loss of libido [None]
  - Social avoidant behaviour [None]
  - Dyspnoea at rest [None]
  - Depression [None]
  - Headache [None]
  - Impatience [None]
  - Loss of personal independence in daily activities [None]
  - Serum ferritin decreased [None]
  - Alopecia [None]
  - Dyspepsia [None]
  - Pain [None]
  - Blood cholesterol increased [None]
  - Palpitations [None]
  - Anxiety [None]

NARRATIVE: CASE EVENT DATE: 2017
